FAERS Safety Report 6753399-5 (Version None)
Quarter: 2010Q2

REPORT INFORMATION
  Report Type: 
  Country: None (occurrence: None)
  Receive Date: 20100520
  Receipt Date: 20090918
  Transmission Date: 20101027
  Serious: Yes (Other)
  Sender: FDA-Public Use
  Company Number: 2009271115

PATIENT
  Age: 58 Year
  Sex: Female

DRUGS (5)
  1. PROVERA [Suspect]
     Indication: HORMONE REPLACEMENT THERAPY
     Dosage: 5 MG, ORAL
     Route: 048
     Dates: start: 19921101, end: 19971201
  2. PREMARIN [Suspect]
     Indication: HORMONE REPLACEMENT THERAPY
     Dosage: 0.625 MG
     Dates: start: 19921101, end: 19971201
  3. PREMPRO [Suspect]
     Indication: HORMONE REPLACEMENT THERAPY
     Dosage: 0.625/2.5MG
     Dates: start: 19971201, end: 19990801
  4. XALATAN [Concomitant]
  5. SYNTHROID [Concomitant]

REACTIONS (1)
  - BREAST CANCER FEMALE [None]
